FAERS Safety Report 22293645 (Version 1)
Quarter: 2023Q2

REPORT INFORMATION
  Report Type: Spontaneous
  Country: GB (occurrence: GB)
  Receive Date: 20230508
  Receipt Date: 20230508
  Transmission Date: 20230721
  Serious: Yes (Other)
  Sender: FDA-Public Use
  Company Number: None

PATIENT

DRUGS (9)
  1. LETROZOLE [Suspect]
     Active Substance: LETROZOLE
     Indication: Product used for unknown indication
     Dosage: 2.5 MG OD, 2.5MG TABLETS ONE TO BE TAKEN?EACH DAY - STATES THIS WAS STOPPED APPROX. 2 WEEKS AGO
  2. ACETYLCYSTEINE [Concomitant]
     Active Substance: ACETYLCYSTEINE
     Dosage: 600MG EFFERVESCENT TABLETS
  3. ALENDRONIC ACID [Concomitant]
     Active Substance: ALENDRONIC ACID
     Dosage: 70MG TABLETS ONE TO BE TAKEN ON THE?SAME DAY EACH WEEK - TUESDAY
  4. AMOXICILLIN [Concomitant]
     Active Substance: AMOXICILLIN
     Dosage: 500MG CAPSULES ONE TO BE TAKEN THREE TIMES A DAY/RESCUE PACK 15 CAPSULE-COMPLETE
  5. CARBOCYSTEINE [Concomitant]
     Active Substance: CARBOCYSTEINE
     Dosage: 375MG CAPSULES 1-2 UPTO TDS PRN TO ALLOW EASIER COUGHING OF MUCUS
  6. LEVOTHYROXINE [Concomitant]
     Active Substance: LEVOTHYROXINE
     Dosage: 25 MICROGRAM TABLETS ALTERNATE DOSE BETWEEN 2 DAILY AND 1 DAILY.
  7. PREDNISOLONE [Concomitant]
     Active Substance: PREDNISOLONE
     Dosage: 5MG TABLETS 6 TABLETS ONCE A DAY FOR 5?DAYS - RESCUE PACK 30 TABLET - COMPLETE
  8. ALBUTEROL [Concomitant]
     Active Substance: ALBUTEROL
     Dosage: 100MICROGRAMS/DOSE INHALER?(MYLAN LTD)
  9. LEVOTHYROXINE [Concomitant]
     Active Substance: LEVOTHYROXINE
     Dosage: 50 MICROGRAM TABLETS ONE TO BE?TAKEN EACH MORNING PREFERABLY 30-60 MINUTES BEFORE BREAKFAST

REACTIONS (1)
  - Hip fracture [Unknown]
